FAERS Safety Report 4284165-0 (Version None)
Quarter: 2004Q1

REPORT INFORMATION
  Report Type: 
  Country: None (occurrence: None)
  Receive Date: 20040203
  Receipt Date: 20040123
  Transmission Date: 20041129
  Serious: Yes (Hospitalization)
  Sender: FDA-Public Use
  Company Number: FR-GLAXOSMITHKLINE-B0321004A

PATIENT
  Age: 19 Year
  Sex: Female

DRUGS (1)
  1. DEROXAT [Suspect]
     Indication: BULIMIA NERVOSA
     Route: 048
     Dates: start: 20010101

REACTIONS (2)
  - EXCITABILITY [None]
  - HYPOMANIA [None]
